FAERS Safety Report 9271919 (Version 1)
Quarter: 2013Q2

REPORT INFORMATION
  Report Type: Spontaneous
  Country: FR (occurrence: FR)
  Receive Date: 20130506
  Receipt Date: 20130506
  Transmission Date: 20140414
  Serious: Yes (Hospitalization)
  Sender: FDA-Public Use
  Company Number: FR-PFIZER INC-2013133934

PATIENT
  Age: 58 Year
  Sex: Male

DRUGS (7)
  1. CYTOTEC [Suspect]
     Indication: ANTACID THERAPY
     Dosage: 200 UG, 1X/DAY
     Route: 048
     Dates: start: 2000
  2. METHOTREXATE [Suspect]
     Indication: PSORIASIS
     Dosage: 12.5 MG, WEEKLY
     Route: 048
     Dates: start: 2000
  3. LEDERFOLINE [Suspect]
     Indication: PSORIASIS
     Dosage: 5 ML, WEEKLY
     Route: 048
     Dates: start: 2000
  4. INDOCID [Suspect]
     Indication: PSORIATIC ARTHROPATHY
     Dosage: 25 MG, 4X/DAY
     Route: 048
     Dates: start: 2000
  5. ZYLORIC [Suspect]
     Indication: HYPERURICAEMIA
     Dosage: 200 MG, 1X/DAY
     Route: 048
  6. TARKA [Suspect]
     Indication: HYPERTENSION
     Dosage: 1 DF, 1X/DAY
     Dates: start: 201206
  7. STELARA [Suspect]
     Indication: PSORIASIS
     Dosage: 90 MG, 1X/DAY
     Route: 051
     Dates: start: 20111022, end: 20120922

REACTIONS (1)
  - Nephrolithiasis [Recovered/Resolved]
